FAERS Safety Report 17423860 (Version 2)
Quarter: 2020Q1

REPORT INFORMATION
  Report Type: Report from Study
  Country: FR (occurrence: FR)
  Receive Date: 20200217
  Receipt Date: 20200330
  Transmission Date: 20200409
  Serious: Yes (Hospitalization)
  Sender: FDA-Public Use
  Company Number: FR-ROCHE-2542584

PATIENT
  Age: 69 Year
  Sex: Female

DRUGS (2)
  1. ATEZOLIZUMAB. [Suspect]
     Active Substance: ATEZOLIZUMAB
     Indication: OVARIAN CANCER
     Dosage: ON 10/JAN/2020, PATIENT RECEIVED LAST DOSE OF ATEZOLIZUMAB 1200 MG BEFORE THE SAE.
     Route: 042
     Dates: start: 20190524
  2. BEVACIZUMAB. [Suspect]
     Active Substance: BEVACIZUMAB
     Indication: OVARIAN CANCER
     Dosage: ON 10/JAN/2020 PATIENT RECEIVED LAST DOSE OF BEVACIZUMAB (15 MG/KG) BEFORE THE SAE
     Route: 042
     Dates: start: 20190524

REACTIONS (2)
  - Renal failure [Not Recovered/Not Resolved]
  - Diarrhoea [Not Recovered/Not Resolved]

NARRATIVE: CASE EVENT DATE: 20200130
